FAERS Safety Report 19352790 (Version 3)
Quarter: 2021Q3

REPORT INFORMATION
  Report Type: Report from Study
  Country: DE (occurrence: DE)
  Receive Date: 20210531
  Receipt Date: 20210719
  Transmission Date: 20211014
  Serious: Yes (Other)
  Sender: FDA-Public Use
  Company Number: DE-AMGEN-DEUNI2021081582

PATIENT
  Age: 77 Year
  Sex: Female
  Weight: 66 kg

DRUGS (35)
  1. MAGNETRANS FORTE [Concomitant]
     Active Substance: MAGNESIUM OXIDE
     Indication: HYPOMAGNESAEMIA
     Dosage: 150 MILLIGRAM, BID
     Route: 048
     Dates: start: 20201118
  2. METOPROLOL. [Concomitant]
     Active Substance: METOPROLOL
     Indication: HYPERTENSION
     Dosage: 50 MILLIGRAM, QD
     Route: 048
     Dates: start: 2020
  3. FOLINIC ACID [Suspect]
     Active Substance: LEUCOVORIN
     Dosage: 640 MILLIGRAM
     Route: 065
     Dates: start: 20210324
  4. MINOCYCLINE [Concomitant]
     Active Substance: MINOCYCLINE HYDROCHLORIDE
     Dosage: 50 MILLIGRAM, BID
     Route: 048
     Dates: start: 20200902
  5. STANGYL [TRIMIPRAMINE MALEATE] [Concomitant]
     Indication: DEPRESSION
     Dosage: 50 MILLIGRAM, BID
     Route: 048
  6. PANITUMUMAB [Suspect]
     Active Substance: PANITUMUMAB
     Dosage: 360 MILLIGRAM
     Route: 042
     Dates: start: 20210324
  7. FOLINIC ACID [Suspect]
     Active Substance: LEUCOVORIN
     Indication: COLORECTAL CANCER METASTATIC
     Dosage: 680 MILLIGRAM
     Route: 065
     Dates: start: 20200902
  8. MCP [Concomitant]
     Active Substance: METOCLOPRAMIDE HYDROCHLORIDE
     Indication: NAUSEA
     Dosage: 10 MILLIGRAM, AS NECESSARY
     Route: 048
     Dates: start: 20200902
  9. CALCIGEN D3 [Concomitant]
     Indication: HYPOCALCAEMIA
     Dosage: 1250 MILLIGRAM, BID
     Route: 048
     Dates: start: 20201123
  10. CEFPODOXIME [Concomitant]
     Active Substance: CEFPODOXIME
     Indication: C-REACTIVE PROTEIN INCREASED
     Dosage: 200 MILLIGRAM, BID
     Route: 048
     Dates: start: 20201112, end: 20201117
  11. RIOPAN [PIROXICAM] [Concomitant]
     Active Substance: PIROXICAM
     Indication: ABDOMINAL PAIN UPPER
     Dosage: 10 MILLILITER, AS NECESSARY
     Route: 048
     Dates: start: 20201014
  12. ATROPIN [ATROPINE] [Concomitant]
     Dosage: 0.25 MILLIGRAM, CYCLICAL
     Route: 058
     Dates: start: 20201209
  13. AMLODIPINE [Concomitant]
     Active Substance: AMLODIPINE BESYLATE
     Indication: HYPERTENSION
     Dosage: 2.5 MILLIGRAM, QD
     Route: 048
     Dates: start: 2020, end: 20210118
  14. FLUOROURACIL. [Suspect]
     Active Substance: FLUOROURACIL
     Indication: COLORECTAL CANCER METASTATIC
     Dosage: 4080 MILLIGRAM
     Route: 042
     Dates: start: 20200902
  15. FLUOROURACIL. [Suspect]
     Active Substance: FLUOROURACIL
     Dosage: 3840 MILLIGRAM
     Route: 042
     Dates: start: 20210324
  16. NOVAMIN [PROCHLORPERAZINE] [Concomitant]
     Active Substance: PROCHLORPERAZINE
     Indication: PAIN
     Dosage: 500 MILLIGRAM, QID
     Route: 048
     Dates: start: 2020
  17. ALPHA LIPON [Concomitant]
     Indication: TREMOR
     Dosage: 600 MILLIGRAM
     Route: 048
     Dates: start: 20210210
  18. VERGENTAN [Concomitant]
     Active Substance: ALIZAPRIDE HYDROCHLORIDE
     Indication: NAUSEA
     Dosage: 50 MILLIGRAM, AS NECESSARY
     Route: 048
     Dates: start: 20200910
  19. BRICANYL [Concomitant]
     Active Substance: TERBUTALINE SULFATE
     Indication: BRONCHOSPASM
     Dosage: 0.5 MILLIGRAM, QD
     Route: 058
     Dates: start: 20201028, end: 20201028
  20. POTASSIUM [Concomitant]
     Active Substance: POTASSIUM
     Indication: HYPOKALAEMIA
     Dosage: 9999 UNK
     Route: 065
     Dates: start: 20210113, end: 20210118
  21. PANITUMUMAB [Suspect]
     Active Substance: PANITUMUMAB
     Indication: COLORECTAL CANCER METASTATIC
     Dosage: 400 MILLIGRAM
     Route: 042
     Dates: start: 20200902
  22. OXALIPLATIN. [Suspect]
     Active Substance: OXALIPLATIN
     Indication: COLORECTAL CANCER METASTATIC
     Dosage: 115 MILLIGRAM
     Route: 065
     Dates: start: 20200902
  23. OXALIPLATIN. [Suspect]
     Active Substance: OXALIPLATIN
     Dosage: 144 MILLIGRAM
     Route: 065
     Dates: start: 20200916
  24. DEXAMETHASON [DEXAMETHASONE] [Concomitant]
     Active Substance: DEXAMETHASONE
     Dosage: 8 MILLIGRAM, CYCLICAL
     Route: 042
     Dates: start: 20200902
  25. PANTOZOL [Concomitant]
     Active Substance: PANTOPRAZOLE SODIUM
     Indication: CHRONIC GASTRITIS
     Dosage: 40 MILLIGRAM, QD
     Route: 048
     Dates: start: 20200910
  26. KALIUM [POTASSIUM] [Concomitant]
     Active Substance: POTASSIUM
     Indication: HYPOKALAEMIA
     Dosage: 20 MILLILITER, AS NECESSARY
     Route: 042
     Dates: start: 20201112, end: 20201118
  27. PREDNISOLON [PREDNISONE] [Concomitant]
     Active Substance: PREDNISONE
     Indication: BRONCHOSPASM
     Dosage: 200 MILLIGRAM, QD
     Route: 042
     Dates: start: 20201028, end: 20201028
  28. ONDANSETRON [Concomitant]
     Active Substance: ONDANSETRON
     Indication: NAUSEA
     Dosage: 8 MILLIGRAM, QD
     Route: 042
     Dates: start: 20201111
  29. CALCIUM [Concomitant]
     Active Substance: CALCIUM
     Indication: HYPOCALCAEMIA
     Dosage: 100 MILLIGRAM, QD
     Route: 048
     Dates: start: 20201118
  30. IRINOTECAN [Concomitant]
     Active Substance: IRINOTECAN
     Dosage: 288?300 MILLIGRAM, CYCLICAL
     Route: 042
     Dates: start: 20201209
  31. UNACID [SULTAMICILLIN TOSILATE] [Concomitant]
     Indication: INFECTION
     Dosage: 3 GRAM, QD
     Route: 042
     Dates: start: 20210113, end: 20210115
  32. LOPERAMID [Concomitant]
     Active Substance: LOPERAMIDE
     Indication: DIARRHOEA
     Dosage: 1.86 MILLIGRAM, AS NECESSARY
     Route: 048
     Dates: start: 20200903
  33. AKYNZEO [Concomitant]
     Active Substance: NETUPITANT\PALONOSETRON HYDROCHLORIDE
     Dosage: 300 MILLIGRAM, CYCLICAL
     Route: 048
     Dates: start: 20200902
  34. SIMVASTATIN. [Concomitant]
     Active Substance: SIMVASTATIN
     Indication: METABOLIC DISORDER
     Dosage: 20 MILLIGRAM, QD
     Route: 048
  35. LAXOBERAL [Concomitant]
     Active Substance: SODIUM PICOSULFATE
     Indication: CONSTIPATION
     Dosage: 15 DROP, AS NECESSARY
     Route: 048
     Dates: start: 20210120

REACTIONS (1)
  - Cachexia [Recovering/Resolving]

NARRATIVE: CASE EVENT DATE: 20210505
